FAERS Safety Report 22320303 (Version 1)
Quarter: 2023Q2

REPORT INFORMATION
  Report Type: Spontaneous
  Country: US (occurrence: None)
  Receive Date: 20230515
  Receipt Date: 20230515
  Transmission Date: 20230722
  Serious: No
  Sender: FDA-Public Use
  Company Number: US-Merck Healthcare KGaA-9401839

PATIENT
  Age: 78 Year
  Sex: Female

DRUGS (2)
  1. EUTHYROX [Suspect]
     Active Substance: LEVOTHYROXINE SODIUM
     Indication: Post procedural hypothyroidism
     Route: 048
  2. EUTHYROX [Suspect]
     Active Substance: LEVOTHYROXINE SODIUM
     Indication: Product used for unknown indication
     Dosage: ONE DOSE OF EVERY SUNDAY 150 MCG AND MONDAY TO SATURDAY 100 MCG
     Route: 048

REACTIONS (5)
  - Osteoporosis [Unknown]
  - Pain [Unknown]
  - Back pain [Unknown]
  - Mobility decreased [Unknown]
  - Arthralgia [Unknown]
